FAERS Safety Report 12829703 (Version 2)
Quarter: 2020Q4

REPORT INFORMATION
  Report Type: Spontaneous
  Country: US (occurrence: US)
  Receive Date: 20161007
  Receipt Date: 20201101
  Transmission Date: 20210113
  Serious: No
  Sender: FDA-Public Use
  Company Number: US-SA-2016SA123138

PATIENT

DRUGS (2)
  1. AUBAGIO [Suspect]
     Active Substance: TERIFLUNOMIDE
     Dosage: 1 DF, QD
     Route: 048
     Dates: start: 20200626
  2. AUBAGIO [Suspect]
     Active Substance: TERIFLUNOMIDE
     Indication: MULTIPLE SCLEROSIS
     Dosage: 14 MG, QD
     Route: 048
     Dates: start: 20160401

REACTIONS (6)
  - Gluten sensitivity [Unknown]
  - Alopecia [Unknown]
  - Hypoaesthesia [Recovered/Resolved]
  - Menstruation delayed [Unknown]
  - Menorrhagia [Unknown]
  - Rash pruritic [Unknown]

NARRATIVE: CASE EVENT DATE: 201604
